FAERS Safety Report 6405476-6 (Version None)
Quarter: 2009Q4

REPORT INFORMATION
  Report Type: 
  Country: None (occurrence: None)
  Receive Date: 20091019
  Receipt Date: 20091012
  Transmission Date: 20100525
  Serious: Yes (Hospitalization)
  Sender: FDA-Public Use
  Company Number: B0598322A

PATIENT
  Age: 55 Year
  Sex: Male
  Weight: 130 kg

DRUGS (8)
  1. ORLISTAT [Suspect]
     Indication: OBESITY
     Route: 048
     Dates: start: 20090109, end: 20090112
  2. CLOZARIL [Suspect]
     Indication: SCHIZOPHRENIA
     Route: 048
     Dates: start: 20060925
  3. ASPIRIN [Concomitant]
     Indication: HYPERTENSION
     Route: 048
  4. AMISULPRIDE [Concomitant]
     Indication: SCHIZOPHRENIA
     Route: 048
  5. FLUOXETINE [Concomitant]
     Indication: DEPRESSION
     Route: 048
  6. SIMVASTATIN [Concomitant]
     Indication: BLOOD CHOLESTEROL INCREASED
     Route: 048
  7. FUROSEMIDE [Concomitant]
     Route: 048
  8. PREDNISOLONE [Concomitant]
     Route: 048

REACTIONS (3)
  - CHRONIC OBSTRUCTIVE PULMONARY DISEASE [None]
  - MECHANICAL VENTILATION [None]
  - RESPIRATORY FAILURE [None]
